FAERS Safety Report 6196034-X (Version None)
Quarter: 2009Q2

REPORT INFORMATION
  Report Type: 
  Country: None (occurrence: None)
  Receive Date: 20090520
  Receipt Date: 20090506
  Transmission Date: 20091009
  Serious: Yes (Hospitalization, Other)
  Sender: FDA-Public Use
  Company Number: US-ROCHE-614877

PATIENT
  Sex: Female

DRUGS (17)
  1. PEGASYS [Suspect]
     Indication: HEPATITIS C
     Dosage: PATIENT FINISHED FOURTH WEEK OF TREATMENT
     Route: 058
     Dates: start: 20090113, end: 20090211
  2. RIBAVIRIN [Interacting]
     Indication: HEPATITIS C
     Dosage: PATIENT FINISHED FOURTH WEEK OF TREATMENT
     Route: 048
     Dates: start: 20090113, end: 20090211
  3. COUMADIN [Interacting]
     Indication: PULMONARY EMBOLISM
     Route: 065
  4. DULCOLAX [Concomitant]
     Dosage: AS NEEDED
  5. MILK OF MAGNESIA TAB [Concomitant]
     Dosage: AS NEEDED
  6. LASIX [Concomitant]
     Route: 042
  7. OXYCONTIN [Concomitant]
  8. MORPHINE SULFATE [Concomitant]
     Dosage: AS NEEDED
  9. NYSTATIN [Concomitant]
  10. SPIRONOLACTONE [Concomitant]
  11. ASPIRIN [Concomitant]
  12. VENTOLIN [Concomitant]
     Dosage: AS NEEDED
  13. ATROVENT [Concomitant]
     Dosage: S NEEDED
  14. ALBUTEROL [Concomitant]
     Dosage: AS NEEDED
  15. POTASSIUM CHLORIDE [Concomitant]
     Dosage: DRUG: POTASSIUM AND SODIUM PHOSPHATE
  16. FLUOXETINE HCL [Concomitant]
  17. VERAPAMIL [Concomitant]

REACTIONS (5)
  - CARDIAC FAILURE CONGESTIVE [None]
  - DRUG INTERACTION [None]
  - FLUID RETENTION [None]
  - HAEMOLYTIC ANAEMIA [None]
  - PULMONARY EMBOLISM [None]
